FAERS Safety Report 10150881 (Version 3)
Quarter: 2014Q2

REPORT INFORMATION
  Report Type: Spontaneous
  Country: US (occurrence: US)
  Receive Date: 20140502
  Receipt Date: 20140516
  Transmission Date: 20141212
  Serious: No
  Sender: FDA-Public Use
  Company Number: US-PFIZER INC-2014121174

PATIENT
  Age: 36 Year
  Sex: Female
  Weight: 106.58 kg

DRUGS (9)
  1. LYRICA [Suspect]
     Indication: FIBROMYALGIA
     Dosage: 50 MG, 2X/DAY
     Dates: start: 201403
  2. LYRICA [Suspect]
     Dosage: 150 MG, DAILY
     Dates: start: 20140409
  3. LYRICA [Suspect]
     Dosage: 50 MG, UNK
  4. LYRICA [Suspect]
     Dosage: 75 MG, UNK
  5. LYRICA [Suspect]
     Dosage: 100 MG, UNK
  6. LYRICA [Suspect]
     Dosage: 75 MG, 2X/DAY
     Dates: start: 2014, end: 20140512
  7. MOBIC [Concomitant]
     Indication: BACK PAIN
     Dosage: UNK
  8. FLEXERIL [Concomitant]
     Indication: MUSCLE RELAXANT THERAPY
     Dosage: UNK
  9. SYNTHROID [Concomitant]
     Indication: THYROID DISORDER
     Dosage: 50 UG, DAILY

REACTIONS (1)
  - Drug ineffective [Unknown]
